FAERS Safety Report 12924477 (Version 1)
Quarter: 2016Q4

REPORT INFORMATION
  Report Type: Spontaneous
  Country: US (occurrence: US)
  Receive Date: 20161109
  Receipt Date: 20161109
  Transmission Date: 20170207
  Serious: No
  Sender: FDA-Public Use
  Company Number: US-AMGEN-USASP2016156024

PATIENT
  Age: 67 Year
  Sex: Female

DRUGS (9)
  1. PARACETAMOL [Concomitant]
     Active Substance: ACETAMINOPHEN
     Indication: CANCER PAIN
     Dosage: UNK
     Route: 048
  2. PEMETREXED [Suspect]
     Active Substance: PEMETREXED
     Indication: SMALL CELL LUNG CANCER METASTATIC
     Dosage: 500 MG/M2, Q3WK
     Route: 042
     Dates: start: 20160721
  3. CISPLATIN. [Suspect]
     Active Substance: CISPLATIN
     Dosage: 56 MG/M2, Q3WK
     Route: 042
     Dates: start: 20160901
  4. GAVISCON [Concomitant]
     Active Substance: ALUMINUM HYDROXIDE\MAGNESIUM CARBONATE
     Indication: REFLUX GASTRITIS
     Dosage: 10 ML, AS REQUIRED
     Route: 048
     Dates: start: 20160723, end: 20160725
  5. OMEPRAZOL [Concomitant]
     Active Substance: OMEPRAZOLE
     Indication: REFLUX GASTRITIS
     Dosage: UNK
     Route: 048
  6. CISPLATIN. [Suspect]
     Active Substance: CISPLATIN
     Indication: PRODUCT USED FOR UNKNOWN INDICATION
     Dosage: 75 MG/M2, Q3WK
     Route: 042
     Dates: start: 20160721, end: 20160811
  7. CHLORAMPENICOL [Concomitant]
     Indication: CONJUNCTIVITIS
     Dosage: 2 %, (0.5 %-,4 IN 1 D)
     Route: 047
     Dates: start: 20160830
  8. ENBREL [Suspect]
     Active Substance: ETANERCEPT
     Indication: PRODUCT USED FOR UNKNOWN INDICATION
     Dosage: UNK
     Route: 065
  9. ABT 888 [Suspect]
     Active Substance: VELIPARIB
     Indication: PRODUCT USED FOR UNKNOWN INDICATION
     Dosage: UNK
     Route: 048

REACTIONS (1)
  - Dizziness [Unknown]

NARRATIVE: CASE EVENT DATE: 20160929
